FAERS Safety Report 14806017 (Version 1)
Quarter: 2018Q2

REPORT INFORMATION
  Report Type: Other
  Country: US (occurrence: US)
  Receive Date: 20180425
  Receipt Date: 20180425
  Transmission Date: 20180711
  Serious: Yes (Other)
  Sender: FDA-Public Use
  Company Number: US-ALSI-201800292

PATIENT
  Age: 7 Year
  Sex: Female

DRUGS (4)
  1. NITROUS OXIDE. [Suspect]
     Active Substance: NITROUS OXIDE
     Indication: INDUCTION AND MAINTENANCE OF ANAESTHESIA
     Route: 055
  2. HALOTHANE. [Concomitant]
     Active Substance: HALOTHANE
  3. OXYGEN. [Concomitant]
     Active Substance: OXYGEN
  4. FENTANYL. [Concomitant]
     Active Substance: FENTANYL

REACTIONS (1)
  - Deafness bilateral [Not Recovered/Not Resolved]
